FAERS Safety Report 8060577-4 (Version None)
Quarter: 2012Q1

REPORT INFORMATION
  Report Type: 
  Country: None (occurrence: None)
  Receive Date: 20120120
  Receipt Date: 20120117
  Transmission Date: 20120608
  Serious: Yes (Hospitalization, Other)
  Sender: FDA-Public Use
  Company Number: PHHY2011NL47953

PATIENT
  Sex: Male

DRUGS (10)
  1. OXYCODONE HCL [Concomitant]
  2. ZOMETA [Suspect]
     Indication: PROSTATE CANCER METASTATIC
     Dosage: 4 MG/100 ML IV IN 20 MINUTES 1X PER 28 DAYS
     Route: 042
     Dates: start: 20110505
  3. ZOMETA [Suspect]
     Dosage: 4 MG/100 ML IV IN 20 MINUTES 1X PER 28 DAYS
     Route: 042
     Dates: start: 20110531
  4. ZOMETA [Suspect]
     Dosage: 4 MG/100 ML IV IN 20 MINUTES 1X PER 28 DAYS
     Route: 042
     Dates: start: 20120117
  5. ZOLADEX [Concomitant]
  6. IRBESARTAN AND HYDROCHLOROTHIAZIDE [Concomitant]
  7. LYRICA [Concomitant]
  8. ZOMETA [Suspect]
     Dosage: 4 MG/100 ML IV IN 20 MINUTES 1X PER 28 DAYS
     Route: 042
     Dates: start: 20111219
  9. MOLAXOLE [Concomitant]
  10. OXYCONTIN [Concomitant]

REACTIONS (4)
  - BACK PAIN [None]
  - MYALGIA [None]
  - ARRHYTHMIA [None]
  - MALAISE [None]
